FAERS Safety Report 8362190-8 (Version None)
Quarter: 2012Q2

REPORT INFORMATION
  Report Type: 
  Country: None (occurrence: None)
  Receive Date: 20120515
  Receipt Date: 20120511
  Transmission Date: 20120825
  Serious: Yes (Hospitalization)
  Sender: FDA-Public Use
  Company Number: US-MERCK-1201USA03076

PATIENT
  Age: 60 Year

DRUGS (4)
  1. LOTREL [Concomitant]
     Route: 065
  2. METFORMIN [Concomitant]
     Route: 065
  3. LANTUS [Concomitant]
     Route: 065
  4. JANUMET [Suspect]
     Route: 048
     Dates: start: 20110801

REACTIONS (1)
  - EYE INFECTION [None]
